FAERS Safety Report 14412226 (Version 1)
Quarter: 2018Q1

REPORT INFORMATION
  Report Type: Spontaneous
  Country: DE (occurrence: DE)
  Receive Date: 20180119
  Receipt Date: 20180119
  Transmission Date: 20180509
  Serious: Yes (Hospitalization, Other)
  Sender: FDA-Public Use
  Company Number: DE-WEST-WARD PHARMACEUTICALS CORP.-DE-H14001-18-00375

PATIENT
  Sex: Female

DRUGS (1)
  1. CIPROFLOXACIN. [Suspect]
     Active Substance: CIPROFLOXACIN
     Indication: PNEUMONIA
     Route: 065

REACTIONS (21)
  - Abdominal distension [Unknown]
  - Oesophageal mucosa erythema [Unknown]
  - Asthenia [Unknown]
  - Pyrexia [Unknown]
  - Panic attack [Unknown]
  - Sleep disorder [Unknown]
  - Decreased appetite [Unknown]
  - Exercise tolerance decreased [Unknown]
  - Cough [Unknown]
  - Urinary tract infection [Unknown]
  - Adjustment disorder [Unknown]
  - Abdominal discomfort [Unknown]
  - Nausea [Unknown]
  - Vomiting [Unknown]
  - Abdominal pain upper [Unknown]
  - Weight decreased [Unknown]
  - Chest discomfort [Unknown]
  - Depression [Unknown]
  - Hyperhidrosis [Unknown]
  - Erosive oesophagitis [Unknown]
  - Anxiety [Unknown]

NARRATIVE: CASE EVENT DATE: 20170522
